FAERS Safety Report 16728891 (Version 2)
Quarter: 2019Q3

REPORT INFORMATION
  Report Type: Spontaneous
  Country: US (occurrence: US)
  Receive Date: 20190822
  Receipt Date: 20190822
  Transmission Date: 20191005
  Serious: No
  Sender: FDA-Public Use
  Company Number: US-MALLINCKRODT-T201802888

PATIENT
  Age: 36 Year
  Sex: Male
  Weight: 83 kg

DRUGS (1)
  1. OXYCODONE [Suspect]
     Active Substance: OXYCODONE
     Indication: PAIN
     Dosage: 150 MG, TWICE DAILY
     Route: 048
     Dates: start: 201806

REACTIONS (3)
  - Drug ineffective [Unknown]
  - Irritability [Unknown]
  - Blood pressure increased [Unknown]

NARRATIVE: CASE EVENT DATE: 201805
